FAERS Safety Report 15246734 (Version 3)
Quarter: 2020Q4

REPORT INFORMATION
  Report Type: Spontaneous
  Country: US (occurrence: US)
  Receive Date: 20180806
  Receipt Date: 20201023
  Transmission Date: 20210113
  Serious: Yes (Other)
  Sender: FDA-Public Use
  Company Number: PHEH2018US031456

PATIENT
  Sex: Female

DRUGS (2)
  1. PROMACTA [Suspect]
     Active Substance: ELTROMBOPAG OLAMINE
     Indication: IMMUNE THROMBOCYTOPENIA
     Dosage: 50 MG, QD (STRENGTH: 50 MG)
     Route: 048
     Dates: start: 20180227
  2. PROMACTA [Suspect]
     Active Substance: ELTROMBOPAG OLAMINE
     Dosage: 12.5 MG, QD (STRENGTH: 12.5 MG)
     Route: 048
     Dates: start: 20180509

REACTIONS (3)
  - Arthralgia [Unknown]
  - Musculoskeletal stiffness [Unknown]
  - Cerebral thrombosis [Unknown]
